FAERS Safety Report 8067304-5 (Version None)
Quarter: 2012Q1

REPORT INFORMATION
  Report Type: 
  Country: None (occurrence: None)
  Receive Date: 20120124
  Receipt Date: 20120112
  Transmission Date: 20120608
  Serious: Yes (Other)
  Sender: FDA-Public Use
  Company Number: GB-GLAXOSMITHKLINE-B0637936A

PATIENT
  Sex: Male

DRUGS (8)
  1. PHENERGAN [Suspect]
     Indication: PRODUCT USED FOR UNKNOWN INDICATION
     Route: 065
  2. LIPITOR [Suspect]
     Indication: PRODUCT USED FOR UNKNOWN INDICATION
     Route: 065
  3. FUCIBET [Suspect]
     Indication: PRODUCT USED FOR UNKNOWN INDICATION
     Route: 065
     Dates: start: 20091230
  4. BACTROBAN [Suspect]
     Indication: SKIN ULCER
     Route: 065
  5. BETNOVATE [Suspect]
     Indication: PRURITUS
     Route: 065
     Dates: start: 20070101
  6. OMEPRAZOLE [Suspect]
     Indication: PRODUCT USED FOR UNKNOWN INDICATION
     Route: 065
  7. PROCHLORPERAZINE [Suspect]
     Indication: VERTIGO
     Route: 065
  8. PROCHLORPERAZINE [Suspect]
     Indication: VERTIGO
     Route: 065
     Dates: start: 20070101

REACTIONS (18)
  - PUSTULAR PSORIASIS [None]
  - RASH PAPULAR [None]
  - HYPERSENSITIVITY [None]
  - CONSTIPATION [None]
  - ULCER [None]
  - CEREBROVASCULAR ACCIDENT [None]
  - INFECTION [None]
  - EOSINOPHILIA [None]
  - ECZEMA [None]
  - MENTAL IMPAIRMENT [None]
  - BLOOD CHOLESTEROL INCREASED [None]
  - RASH PUSTULAR [None]
  - PRURITUS [None]
  - CONDITION AGGRAVATED [None]
  - INSOMNIA [None]
  - RASH PRURITIC [None]
  - SWELLING [None]
  - DRUG INEFFECTIVE [None]
